FAERS Safety Report 23773889 (Version 1)
Quarter: 2024Q2

REPORT INFORMATION
  Report Type: Spontaneous
  Country: CN (occurrence: CN)
  Receive Date: 20240423
  Receipt Date: 20240423
  Transmission Date: 20240716
  Serious: Yes (Other)
  Sender: FDA-Public Use
  Company Number: None

PATIENT
  Age: 55 Year
  Sex: Female
  Weight: 51 kg

DRUGS (4)
  1. CYCLOPHOSPHAMIDE [Suspect]
     Active Substance: CYCLOPHOSPHAMIDE
     Indication: Breast cancer
     Dosage: 0.9 G, ONE TIME IN ONE DAY, DILUTED WITH 5% GLUCOSE 500 ML, AS A PART OF AC-TH REGIMEN, SECOND CYCLE
     Route: 041
     Dates: start: 20240318, end: 20240318
  2. SODIUM CHLORIDE [Suspect]
     Active Substance: SODIUM CHLORIDE
     Indication: Medication dilution
     Dosage: 0.9%, 500 ML, ONE TIME IN ONE DAY, USED TO DILUTE 140 MG OF EPIRUBICIN HYDROCHLORIDE, SECOND CYCLE O
     Route: 041
     Dates: start: 20240318, end: 20240318
  3. DEXTROSE [Suspect]
     Active Substance: DEXTROSE\DEXTROSE MONOHYDRATE
     Indication: Medication dilution
     Dosage: 5%, 500 ML, ONE TIME IN ONE DAY, USED TO DILUTE 0.9 G OF CYCLOPHOSPHAMIDE, SECOND CYCLE OF CHEMOTHER
     Route: 041
     Dates: start: 20240318, end: 20240318
  4. EPIRUBICIN HYDROCHLORIDE [Suspect]
     Active Substance: EPIRUBICIN HYDROCHLORIDE
     Indication: Breast cancer
     Dosage: 140 MG, ONE TIME IN ONE DAY, DILUTED WITH 0.9% SODIUM CHLORIDE 500 ML, AS A PART OF AC-TH REGIMEN, S
     Route: 041
     Dates: start: 20240318, end: 20240318

REACTIONS (1)
  - Myelosuppression [Recovering/Resolving]

NARRATIVE: CASE EVENT DATE: 20240329
